FAERS Safety Report 5531690-8 (Version None)
Quarter: 2007Q4

REPORT INFORMATION
  Report Type: 
  Country: None (occurrence: None)
  Receive Date: 20071203
  Receipt Date: 20071121
  Transmission Date: 20080405
  Serious: Yes (Other)
  Sender: FDA-Public Use
  Company Number: US-WYE-H00580407

PATIENT
  Sex: Male
  Weight: 99.88 kg

DRUGS (4)
  1. EFFEXOR XR [Suspect]
     Indication: DEPRESSION
     Route: 048
     Dates: end: 20060101
  2. EFFEXOR XR [Suspect]
     Indication: ANXIETY
     Route: 048
     Dates: start: 20060101, end: 20060101
  3. EFFEXOR XR [Suspect]
     Route: 048
     Dates: start: 20060101, end: 20070101
  4. EFFEXOR XR [Suspect]
     Dosage: TAPERED OFF
     Route: 048
     Dates: start: 20070101, end: 20070101

REACTIONS (9)
  - DIZZINESS [None]
  - DRUG EFFECT DECREASED [None]
  - DYSKINESIA [None]
  - FALL [None]
  - FLUSHING [None]
  - FOOD INTERACTION [None]
  - LOSS OF CONSCIOUSNESS [None]
  - SEROTONIN SYNDROME [None]
  - TREMOR [None]
